FAERS Safety Report 13703530 (Version 3)
Quarter: 2017Q3

REPORT INFORMATION
  Report Type: Spontaneous
  Country: US (occurrence: US)
  Receive Date: 20170629
  Receipt Date: 20170915
  Transmission Date: 20171127
  Serious: Yes (Other)
  Sender: FDA-Public Use
  Company Number: US-PFIZER INC-2017277510

PATIENT
  Age: 64 Year
  Sex: Female
  Weight: 74.84 kg

DRUGS (12)
  1. BIOTIN [Concomitant]
     Active Substance: BIOTIN
     Indication: HAIR DISORDER
     Dosage: 5000MCG
  2. LOSARTAN AND HYDROCHLOROTHIAZIDE [Concomitant]
     Active Substance: HYDROCHLOROTHIAZIDE\LOSARTAN POTASSIUM
     Dosage: UNK (50-125 MG)
  3. ZEGERID [Concomitant]
     Active Substance: OMEPRAZOLE\SODIUM BICARBONATE
     Indication: GASTROOESOPHAGEAL REFLUX DISEASE
     Dosage: 20 MG
  4. AZITHROMYCIN ANHYDROUS. [Suspect]
     Active Substance: AZITHROMYCIN ANHYDROUS
     Dosage: 250 MG, TOOK TWO PILLS THE DAY SHE GOT HOME
     Route: 048
     Dates: start: 20170315, end: 20170319
  5. ZEGERID [Concomitant]
     Active Substance: OMEPRAZOLE\SODIUM BICARBONATE
     Dosage: UNK, 1X/DAY
  6. AZITHROMYCIN ANHYDROUS. [Suspect]
     Active Substance: AZITHROMYCIN ANHYDROUS
     Dosage: 250 MG, ONE A DAY(CONTINUED TO TAKE THE PRODUCT ONE A DAY)
     Dates: start: 20170315, end: 20170319
  7. SYNTHROID [Concomitant]
     Active Substance: LEVOTHYROXINE SODIUM
     Indication: THYROID DISORDER
     Dosage: 25 MG, ONCE A DAY (DOSE IN THE MORNING)
  8. BIOTIN [Concomitant]
     Active Substance: BIOTIN
     Indication: SKIN DISORDER
     Dosage: 5000 MG, 1X/DAY
  9. BENDROFLUMETHIAZIDE [Concomitant]
     Active Substance: BENDROFLUMETHIAZIDE
     Indication: IRRITABLE BOWEL SYNDROME
     Dosage: 10 MG, AS NEEDED(10MG, 1 CAPSULE 4 TIMES A DAY AS NEEDED)
  10. LOSARTAN AND HYDROCHLOROTHIAZIDE [Concomitant]
     Active Substance: HYDROCHLOROTHIAZIDE\LOSARTAN POTASSIUM
     Indication: BLOOD PRESSURE MANAGEMENT
     Dosage: 12.5MG
  11. BIOTIN [Concomitant]
     Active Substance: BIOTIN
     Indication: NAIL DISORDER
  12. AZITHROMYCIN ANHYDROUS. [Suspect]
     Active Substance: AZITHROMYCIN ANHYDROUS
     Indication: BRONCHITIS
     Dosage: 250 MG, ONCE A DAY
     Route: 048
     Dates: start: 20170315, end: 20170319

REACTIONS (11)
  - Palpitations [Not Recovered/Not Resolved]
  - Insomnia [Unknown]
  - Nausea [Recovered/Resolved]
  - Hyperhidrosis [Unknown]
  - Hypertension [Recovered/Resolved]
  - Tremor [Recovered/Resolved]
  - Anxiety [Recovered/Resolved]
  - Drug hypersensitivity [Unknown]
  - Heart rate increased [Recovered/Resolved]
  - Tinnitus [Recovered/Resolved]
  - Dyspnoea [Recovered/Resolved]

NARRATIVE: CASE EVENT DATE: 20170317
